FAERS Safety Report 12636106 (Version 2)
Quarter: 2016Q3

REPORT INFORMATION
  Report Type: Spontaneous
  Country: US (occurrence: US)
  Receive Date: 20160809
  Receipt Date: 20160901
  Transmission Date: 20161109
  Serious: No
  Sender: FDA-Public Use
  Company Number: US-BAYER-2016-152673

PATIENT
  Age: 59 Year
  Sex: Female

DRUGS (1)
  1. BETASERON [Suspect]
     Active Substance: INTERFERON BETA-1B
     Indication: MULTIPLE SCLEROSIS
     Dosage: 0.25 MG, QOD (0.3MG, QOD)
     Route: 058
     Dates: start: 20110825

REACTIONS (3)
  - Injection site rash [None]
  - Injection site pain [None]
  - Injection site rash [None]

NARRATIVE: CASE EVENT DATE: 20160804
